FAERS Safety Report 25022824 (Version 1)
Quarter: 2025Q1

REPORT INFORMATION
  Report Type: Spontaneous
  Country: US (occurrence: US)
  Receive Date: 20250228
  Receipt Date: 20250228
  Transmission Date: 20250409
  Serious: Yes (Other)
  Sender: MYLAN
  Company Number: US-MYLANLABS-2025M1015414

PATIENT
  Age: 47 Year
  Sex: Female

DRUGS (7)
  1. PREDNISONE [Suspect]
     Active Substance: PREDNISONE
     Indication: Cardiac sarcoidosis
     Dosage: 40 MILLIGRAM, QD
  2. APIXABAN [Concomitant]
     Active Substance: APIXABAN
     Indication: Portal vein thrombosis
  3. FENTANYL [Concomitant]
     Active Substance: FENTANYL
     Indication: Abdominal pain
  4. METHADONE [Concomitant]
     Active Substance: METHADONE HYDROCHLORIDE
     Indication: Abdominal pain
  5. GABAPENTIN [Concomitant]
     Active Substance: GABAPENTIN
     Indication: Abdominal pain
  6. LIDOCAINE [Concomitant]
     Active Substance: LIDOCAINE
     Indication: Abdominal pain
  7. HYDROMORPHONE [Concomitant]
     Active Substance: HYDROMORPHONE
     Indication: Abdominal pain

REACTIONS (1)
  - Drug ineffective [Unknown]
